FAERS Safety Report 10022041 (Version 1)
Quarter: 2014Q1

REPORT INFORMATION
  Report Type: Spontaneous
  Country: CZ (occurrence: CZ)
  Receive Date: 20140319
  Receipt Date: 20140319
  Transmission Date: 20141002
  Serious: Yes (Death, Other)
  Sender: FDA-Public Use
  Company Number: CZ-JNJFOC-20140310701

PATIENT
  Age: 61 Year
  Sex: Male

DRUGS (11)
  1. SIMPONI [Suspect]
     Indication: PSORIATIC ARTHROPATHY
     Route: 058
     Dates: start: 20130410, end: 20140226
  2. METHOTREXAT EBEWE [Suspect]
     Indication: PSORIATIC ARTHROPATHY
     Route: 048
     Dates: end: 20140309
  3. CALTRATE PLUS [Concomitant]
     Route: 065
  4. ACIDUM FOLICUM [Concomitant]
     Route: 065
  5. FOSAVANCE [Concomitant]
     Route: 065
  6. LOZAP (LOSARTAN POTASSIUM) [Concomitant]
     Route: 065
  7. MEDROL [Concomitant]
     Route: 065
  8. AMLODIPINE  BESILATE [Concomitant]
     Route: 065
  9. ALPHA D3 [Concomitant]
     Route: 065
  10. ACECOR [Concomitant]
     Route: 065
  11. APO-DICLO [Concomitant]
     Route: 065

REACTIONS (2)
  - Pancytopenia [Fatal]
  - Cardio-respiratory arrest [Fatal]
